FAERS Safety Report 6443408-5 (Version None)
Quarter: 2009Q4

REPORT INFORMATION
  Report Type: 
  Country: None (occurrence: None)
  Receive Date: 20091117
  Receipt Date: 20091105
  Transmission Date: 20100525
  Serious: Yes (Hospitalization)
  Sender: FDA-Public Use
  Company Number: BE-PFIZER INC-2009282342

PATIENT
  Age: 87 Year
  Sex: Female

DRUGS (11)
  1. EXEMESTANE [Suspect]
     Indication: BREAST CANCER
     Dosage: 25 MG, 1X/DAY
     Route: 048
     Dates: start: 20030910
  2. DITROPAN [Concomitant]
     Dosage: UNK
     Route: 048
  3. BETAHISTINE [Concomitant]
     Dosage: UNK
     Route: 048
  4. LASIX [Concomitant]
     Dosage: UNK
     Route: 048
  5. ENALAPRIL [Concomitant]
     Dosage: UNK
     Route: 048
  6. KREDEX [Concomitant]
     Dosage: UNK
     Route: 048
  7. LIPITOR [Concomitant]
     Dosage: UNK
     Route: 048
  8. GAVISCON [Concomitant]
     Dosage: UNK
     Route: 048
     Dates: start: 20080418
  9. DEPONIT [Concomitant]
     Dosage: UNK
     Route: 061
     Dates: start: 20080418
  10. DOGMATIL [Concomitant]
     Dosage: UNK
     Route: 048
     Dates: start: 20080418
  11. ASAFLOW [Concomitant]
     Dosage: UNK
     Route: 048
     Dates: start: 20080418

REACTIONS (1)
  - VASCULAR INSUFFICIENCY [None]
